FAERS Safety Report 4825093-9 (Version None)
Quarter: 2005Q4

REPORT INFORMATION
  Report Type: 
  Country: None (occurrence: None)
  Receive Date: 20051109
  Receipt Date: 20051109
  Transmission Date: 20060501
  Serious: Yes (Life-Threatening)
  Sender: FDA-Public Use
  Company Number: None

PATIENT
  Age: 51 Year
  Sex: Female

DRUGS (1)
  1. FENTANYL [Suspect]
     Indication: PAIN
     Dosage: 50MCG    2 DOSES     IV BOLUS
     Route: 040
     Dates: start: 20050728, end: 20050728

REACTIONS (2)
  - PROCEDURAL COMPLICATION [None]
  - RESPIRATORY ARREST [None]
